FAERS Safety Report 4347881-8 (Version None)
Quarter: 2004Q2

REPORT INFORMATION
  Report Type: 
  Country: None (occurrence: None)
  Receive Date: 20040422
  Receipt Date: 20040330
  Transmission Date: 20050107
  Serious: Yes (Death)
  Sender: FDA-Public Use
  Company Number: KII-2000-0000157

PATIENT
  Age: 78 Year
  Sex: Male

DRUGS (1)
  1. OXYCONTIN [Suspect]
     Indication: CANCER PAIN

REACTIONS (3)
  - BONE NEOPLASM MALIGNANT [None]
  - CONDITION AGGRAVATED [None]
  - PROSTATE CANCER [None]
